FAERS Safety Report 6139064-6 (Version None)
Quarter: 2009Q1

REPORT INFORMATION
  Report Type: 
  Country: None (occurrence: None)
  Receive Date: 20090324
  Receipt Date: 20090318
  Transmission Date: 20090719
  Serious: Yes (Hospitalization)
  Sender: FDA-Public Use
  Company Number: 8044141

PATIENT

DRUGS (1)
  1. KEPPRA [Suspect]
     Dates: start: 20090110

REACTIONS (4)
  - CONVULSION [None]
  - FEELING ABNORMAL [None]
  - GASTRIC DISORDER [None]
  - PRODUCT QUALITY ISSUE [None]
